FAERS Safety Report 25910522 (Version 1)
Quarter: 2025Q4

REPORT INFORMATION
  Report Type: Spontaneous
  Country: US (occurrence: US)
  Receive Date: 20251013
  Receipt Date: 20251013
  Transmission Date: 20260118
  Serious: No
  Sender: SANOFI AVENTIS
  Company Number: US-SA-2025SA298879

PATIENT
  Age: 87 Year
  Sex: Female

DRUGS (1)
  1. DUPIXENT [Suspect]
     Active Substance: DUPILUMAB
     Indication: Pemphigus
     Dosage: 300 MG, QOW
     Route: 058
     Dates: start: 202203

REACTIONS (8)
  - Anxiety [Unknown]
  - Blood pressure decreased [Unknown]
  - Flushing [Unknown]
  - Psoriasis [Unknown]
  - Rash erythematous [Unknown]
  - Stress [Unknown]
  - Condition aggravated [Unknown]
  - Product use in unapproved indication [Unknown]

NARRATIVE: CASE EVENT DATE: 20250701
